FAERS Safety Report 25024783 (Version 7)
Quarter: 2025Q3

REPORT INFORMATION
  Report Type: Spontaneous
  Country: EU (occurrence: EU)
  Receive Date: 20250228
  Receipt Date: 20250704
  Transmission Date: 20251021
  Serious: Yes (Other)
  Sender: TEVA
  Company Number: None

PATIENT
  Age: 26 Year
  Sex: Female

DRUGS (9)
  1. DESLORATADINE [Suspect]
     Active Substance: DESLORATADINE
     Indication: Product used for unknown indication
     Route: 065
     Dates: start: 20240415, end: 20250109
  2. TRIAMCINOLONE [Suspect]
     Active Substance: TRIAMCINOLONE
     Indication: Cystic fibrosis
     Route: 065
     Dates: start: 20240415, end: 20250109
  3. FORMOTEROL FUMARATE DIHYDRATE [Suspect]
     Active Substance: FORMOTEROL FUMARATE DIHYDRATE
     Indication: Cystic fibrosis
     Route: 065
     Dates: start: 20240415, end: 20250109
  4. ELEXACAFTOR\IVACAFTOR\TEZACAFTOR [Suspect]
     Active Substance: ELEXACAFTOR\IVACAFTOR\TEZACAFTOR
     Indication: Cystic fibrosis
     Dosage: 100 MG/50 MG/75 MG
     Route: 065
     Dates: start: 20240415, end: 20250109
  5. CHOLECALCIFEROL [Suspect]
     Active Substance: CHOLECALCIFEROL
     Indication: Vitamin supplementation
     Route: 065
     Dates: start: 20240415, end: 20250109
  6. KALYDECO [Suspect]
     Active Substance: IVACAFTOR
     Indication: Cystic fibrosis
     Route: 065
     Dates: start: 20240415, end: 20250109
  7. PANCRELIPASE [Suspect]
     Active Substance: PANCRELIPASE
     Indication: Cystic fibrosis
     Dosage: 25,000 U
     Route: 065
     Dates: start: 20240415, end: 20250109
  8. ESOMEPRAZOLE [Suspect]
     Active Substance: ESOMEPRAZOLE
     Indication: Cystic fibrosis
     Route: 065
     Dates: start: 20240415, end: 20250109
  9. BUDESONIDE [Suspect]
     Active Substance: BUDESONIDE
     Indication: Cystic fibrosis
     Route: 065
     Dates: start: 20240415, end: 20250109

REACTIONS (2)
  - Pericardial effusion [Recovered/Resolved]
  - Maternal exposure during pregnancy [Recovered/Resolved]

NARRATIVE: CASE EVENT DATE: 20240415
